FAERS Safety Report 4313024-X (Version None)
Quarter: 2004Q1

REPORT INFORMATION
  Report Type: 
  Country: None (occurrence: None)
  Receive Date: 20040224
  Receipt Date: 20040209
  Transmission Date: 20041129
  Serious: Yes (Life-Threatening)
  Sender: FDA-Public Use
  Company Number: 230267

PATIENT
  Age: 24 Year
  Sex: Female
  Weight: 69 kg

DRUGS (6)
  1. NOVOSEVEN [Suspect]
     Indication: INJURY
     Dosage: INTRAVENOUS
     Route: 042
     Dates: start: 20030709, end: 20030710
  2. PROPOFOL [Concomitant]
  3. SUFENTANIL CITRATE [Concomitant]
  4. AMOXICILLIN [Concomitant]
  5. OFLOXACIN [Concomitant]
  6. EPINEPHRINE [Concomitant]

REACTIONS (8)
  - ARRHYTHMIA [None]
  - CARDIAC ARREST [None]
  - COMPUTERISED TOMOGRAM ABNORMAL [None]
  - DILATATION VENTRICULAR [None]
  - ELECTROCARDIOGRAM T WAVE AMPLITUDE DECREASED [None]
  - HYPOXIA [None]
  - PULMONARY ARTERY THROMBOSIS [None]
  - TRICUSPID VALVE INCOMPETENCE [None]
